FAERS Safety Report 4756729-9 (Version None)
Quarter: 2005Q3

REPORT INFORMATION
  Report Type: 
  Country: None (occurrence: None)
  Receive Date: 20050830
  Receipt Date: 20050427
  Transmission Date: 20060218
  Serious: Yes (Hospitalization, Disabling)
  Sender: FDA-Public Use
  Company Number: US-MERCK-0505USA00270

PATIENT
  Age: 49 Year
  Sex: Male
  Weight: 89 kg

DRUGS (8)
  1. VIOXX [Suspect]
     Indication: ARTHRITIS
     Route: 048
     Dates: start: 20020101, end: 20040101
  2. VIOXX [Suspect]
     Route: 048
     Dates: start: 20020101, end: 20040101
  3. AVANDAMET [Concomitant]
     Route: 065
  4. GLYBURIDE [Concomitant]
     Route: 065
  5. PREVACID [Concomitant]
     Route: 065
  6. COZAAR [Concomitant]
     Route: 048
  7. METFORMIN [Concomitant]
     Route: 065
  8. GLUCOPHAGE [Concomitant]
     Route: 065

REACTIONS (14)
  - ABDOMINAL DISTENSION [None]
  - ANGINA PECTORIS [None]
  - ASTHENIA [None]
  - BLOOD CHOLESTEROL INCREASED [None]
  - BLOOD TRIGLYCERIDES INCREASED [None]
  - CHEST DISCOMFORT [None]
  - CHRONIC FATIGUE SYNDROME [None]
  - CORONARY ARTERY DISEASE [None]
  - GASTROOESOPHAGEAL REFLUX DISEASE [None]
  - HYPERTENSION [None]
  - MYOCARDIAL INFARCTION [None]
  - STOMACH DISCOMFORT [None]
  - SYNCOPE [None]
  - VOMITING [None]
